FAERS Safety Report 6455402-9 (Version None)
Quarter: 2009Q4

REPORT INFORMATION
  Report Type: 
  Country: None (occurrence: None)
  Receive Date: 20091125
  Receipt Date: 20091109
  Transmission Date: 20100525
  Serious: No
  Sender: FDA-Public Use
  Company Number: US-ABBOTT-09P-163-0602718-00

PATIENT
  Sex: Female

DRUGS (4)
  1. SIMCOR [Suspect]
     Indication: BLOOD TRIGLYCERIDES INCREASED
     Route: 048
     Dates: start: 20091009, end: 20091012
  2. SIMCOR [Suspect]
     Indication: BLOOD CHOLESTEROL INCREASED
  3. NEXIUM [Concomitant]
     Indication: DRUG USE FOR UNKNOWN INDICATION
  4. GENERIC FOR ZOLOFT [Concomitant]
     Indication: DRUG USE FOR UNKNOWN INDICATION

REACTIONS (6)
  - BURNING SENSATION [None]
  - CYANOSIS [None]
  - HEADACHE [None]
  - PARAESTHESIA [None]
  - PERIPHERAL COLDNESS [None]
  - SKIN BURNING SENSATION [None]
